FAERS Safety Report 6868761-X (Version None)
Quarter: 2010Q3

REPORT INFORMATION
  Report Type: 
  Country: None (occurrence: None)
  Receive Date: 20100721
  Receipt Date: 20100721
  Transmission Date: 20110219
  Serious: Yes (Life-Threatening, Hospitalization, Disabling, Other)
  Sender: FDA-Public Use
  Company Number: None

PATIENT
  Sex: Female
  Weight: 90.7194 kg

DRUGS (1)
  1. AVANDIA [Suspect]
     Indication: DIABETES MELLITUS MALNUTRITION-RELATED
     Dosage: 8 MGS DAILY PO
     Route: 048

REACTIONS (3)
  - ANGIOPLASTY [None]
  - CORONARY ARTERY BYPASS [None]
  - STENT PLACEMENT [None]
